FAERS Safety Report 12528546 (Version 4)
Quarter: 2016Q3

REPORT INFORMATION
  Report Type: Spontaneous
  Country: JP (occurrence: JP)
  Receive Date: 20160705
  Receipt Date: 20160808
  Transmission Date: 20161109
  Serious: Yes (Death, Other)
  Sender: FDA-Public Use
  Company Number: JP-B.I. PHARMACEUTICALS,INC./RIDGEFIELD-2016-BI-42849NB

PATIENT
  Age: 84 Year
  Sex: Female
  Weight: 42 kg

DRUGS (7)
  1. PRAZAXA [Suspect]
     Active Substance: DABIGATRAN ETEXILATE MESYLATE
     Indication: ATRIAL FIBRILLATION
     Dosage: 150 MG
     Route: 048
     Dates: end: 20160628
  2. ZYLORIC [Concomitant]
     Active Substance: ALLOPURINOL
     Indication: HYPERURICAEMIA
     Dosage: 100 MG
     Route: 048
     Dates: end: 20160628
  3. BAYASPIRIN [Suspect]
     Active Substance: ASPIRIN
     Indication: ANGINA PECTORIS
     Dosage: 100 MG
     Route: 048
     Dates: end: 20160628
  4. HALFDIGOXIN [Concomitant]
     Active Substance: DIGOXIN
     Indication: ATRIAL FIBRILLATION
     Dosage: 0.125 MG
     Route: 048
     Dates: end: 20160628
  5. LIVALO [Concomitant]
     Active Substance: PITAVASTATIN CALCIUM
     Indication: DYSLIPIDAEMIA
     Dosage: 2 MG
     Route: 048
     Dates: end: 20160628
  6. TRAMCET [Concomitant]
     Active Substance: ACETAMINOPHEN\TRAMADOL
     Indication: COLLAGEN DISORDER
     Dosage: DOSE PER APP AND DAILY DOSE: 2 DF
     Route: 048
     Dates: end: 20160628
  7. CELECOX [Concomitant]
     Active Substance: CELECOXIB
     Indication: COLLAGEN DISORDER
     Dosage: 200 MG
     Route: 048
     Dates: end: 20160628

REACTIONS (4)
  - Encephalocele [Unknown]
  - Subdural haematoma [Unknown]
  - Cerebral haemorrhage [Fatal]
  - Fall [Unknown]

NARRATIVE: CASE EVENT DATE: 20160628
